FAERS Safety Report 14289683 (Version 1)
Quarter: 2017Q4

REPORT INFORMATION
  Report Type: Spontaneous
  Country: US (occurrence: None)
  Receive Date: 20171215
  Receipt Date: 20171215
  Transmission Date: 20180321
  Serious: Yes (Hospitalization)
  Sender: FDA-Public Use
  Company Number: None

PATIENT
  Age: 59 Year
  Sex: Female

DRUGS (18)
  1. XGEVA [Concomitant]
     Active Substance: DENOSUMAB
  2. LORATADINE. [Concomitant]
     Active Substance: LORATADINE
  3. IBRANCE [Suspect]
     Active Substance: PALBOCICLIB
     Indication: BREAST CANCER
     Route: 048
     Dates: start: 20171020
  4. ONDANSETRON [Concomitant]
     Active Substance: ONDANSETRON
  5. OMEPRAZOLE. [Concomitant]
     Active Substance: OMEPRAZOLE
  6. MONTELUKAST [Concomitant]
     Active Substance: MONTELUKAST SODIUM
  7. LISINOPRIL. [Concomitant]
     Active Substance: LISINOPRIL
  8. FEMARA [Concomitant]
     Active Substance: LETROZOLE
  9. CALCITRATE [Concomitant]
     Active Substance: CALCIUM CITRATE
  10. FLUTICASONE. [Concomitant]
     Active Substance: FLUTICASONE
  11. XOPENEX [Concomitant]
     Active Substance: LEVALBUTEROL HYDROCHLORIDE
  12. MULTI-VITAMIN [Concomitant]
     Active Substance: .ALPHA.-TOCOPHEROL ACETATE, DL-\ASCORBIC ACID\CYANOCOBALAMIN\FLUORIDE ION\FOLIC ACID\NIACIN\PYRIDOXINE\RIBOFLAVIN\THIAMINE\VITAMIN A\VITAMIN D
  13. STOOL SOFTNR [Concomitant]
  14. ACID REDUCER [Concomitant]
  15. VALACYCLOVIR [Concomitant]
     Active Substance: VALACYCLOVIR HYDROCHLORIDE
  16. LEVALBUTEROL. [Concomitant]
     Active Substance: LEVALBUTEROL
  17. SINGULAIR [Concomitant]
     Active Substance: MONTELUKAST SODIUM
  18. PENLAC [Concomitant]
     Active Substance: CICLOPIROX

REACTIONS (1)
  - Hospitalisation [None]

NARRATIVE: CASE EVENT DATE: 20171214
